FAERS Safety Report 7250270-X (Version None)
Quarter: 2011Q1

REPORT INFORMATION
  Report Type: 
  Country: None (occurrence: None)
  Receive Date: 20110128
  Receipt Date: 20110124
  Transmission Date: 20110831
  Serious: Yes (Other)
  Sender: FDA-Public Use
  Company Number: CA-PFIZER INC-2011005872

PATIENT
  Age: 20 Year
  Sex: Male
  Weight: 83 kg

DRUGS (2)
  1. CLARITIN [Concomitant]
     Indication: HYPERSENSITIVITY
     Dosage: UNK
  2. PRISTIQ [Suspect]
     Indication: DEPRESSION
     Dosage: 100 MG, 1X/DAY
     Route: 048
     Dates: start: 20100401

REACTIONS (5)
  - COELIAC DISEASE [None]
  - VOMITING [None]
  - ABNORMAL LOSS OF WEIGHT [None]
  - HIATUS HERNIA [None]
  - MALAISE [None]
